FAERS Safety Report 9930661 (Version 1)
Quarter: 2014Q1

REPORT INFORMATION
  Report Type: Spontaneous
  Country: US (occurrence: US)
  Receive Date: 20140227
  Receipt Date: 20140227
  Transmission Date: 20141002
  Serious: No
  Sender: FDA-Public Use
  Company Number: US-AMGEN-USASP2013091279

PATIENT
  Age: 64 Year
  Sex: Male
  Weight: 127 kg

DRUGS (9)
  1. ENBREL [Suspect]
     Indication: PRODUCT USED FOR UNKNOWN INDICATION
     Dosage: 50 MG/ML, QWK
     Route: 058
  2. FOLIC ACID [Concomitant]
     Dosage: UNK
  3. LISINOPRIL [Concomitant]
     Dosage: 10 MG, UNK
  4. PREDNISOLONE [Concomitant]
     Dosage: 1 %, UNK
  5. TRIAMTERENE AND HYDROCHLOROTHIAZIDE [Concomitant]
     Dosage: 37.5-25
  6. LEVOTHYROXINE [Concomitant]
     Dosage: 200 MUG, UNK
  7. NIACIN [Concomitant]
     Dosage: 500 MG, ER
  8. VITAMIN D                          /00107901/ [Concomitant]
     Dosage: 2000 UNIT, UNK
  9. LEFLUNOMIDE [Concomitant]
     Dosage: 20 MG, UNK

REACTIONS (2)
  - Musculoskeletal stiffness [Unknown]
  - Fatigue [Unknown]
